FAERS Safety Report 19738747 (Version 1)
Quarter: 2021Q3

REPORT INFORMATION
  Report Type: Spontaneous
  Country: US (occurrence: US)
  Receive Date: 20210823
  Receipt Date: 20210823
  Transmission Date: 20211014
  Serious: No
  Sender: FDA-Public Use
  Company Number: US-BRAINTREE LABORATORIES, INC.-2021BTE00153

PATIENT
  Age: 54 Year
  Sex: Male
  Weight: 82.55 kg

DRUGS (5)
  1. UNSPECIFIED CHOLESTEROL MEDICINE [Concomitant]
  2. PEG?3350 AND ELECTROLYTES [Suspect]
     Active Substance: POLYETHYLENE GLYCOL 3350\POTASSIUM CHLORIDE\SODIUM BICARBONATE\SODIUM CHLORIDE\SODIUM SULFATE
     Indication: COLONOSCOPY
     Dosage: 4L, 1X
     Route: 048
     Dates: start: 20210303, end: 20210304
  3. UNSPECIFIED ALLERGY PILL [Concomitant]
  4. UNSPECIFIED BLOOD PRESSURE MEDICINE [Concomitant]
     Active Substance: UNSPECIFIED INGREDIENT
  5. OTC ACID REDUCER [Concomitant]

REACTIONS (1)
  - Drug ineffective [Recovered/Resolved]

NARRATIVE: CASE EVENT DATE: 20210304
